FAERS Safety Report 4946191-5 (Version None)
Quarter: 2006Q1

REPORT INFORMATION
  Report Type: 
  Country: None (occurrence: None)
  Receive Date: 20060118
  Receipt Date: 20050111
  Transmission Date: 20060701
  Serious: Yes (Other)
  Sender: FDA-Public Use
  Company Number: US-JNJFOC-20041206667

PATIENT
  Age: 33 Year
  Sex: Female

DRUGS (1)
  1. DOXIL (DOXORUBICIN HYDROCHLORIDE) LIPOSME INJECTION [Suspect]
     Indication: OVARIAN CANCER
     Dosage: 72 MG, INTRAVENOUS
     Route: 042
     Dates: start: 20041222, end: 20041222

REACTIONS (2)
  - ABDOMINAL PAIN [None]
  - INFUSION RELATED REACTION [None]
